FAERS Safety Report 11801096 (Version 1)
Quarter: 2015Q4

REPORT INFORMATION
  Report Type: Other
  Country: US (occurrence: US)
  Receive Date: 20151204
  Receipt Date: 20151204
  Transmission Date: 20160305
  Serious: Yes (Life-Threatening, Hospitalization)
  Sender: FDA-Public Use
  Company Number: US-LUPIN PHARMACEUTICALS INC.-2015-03906

PATIENT
  Age: 45 Year
  Sex: Male

DRUGS (3)
  1. LORAZEPAM. [Interacting]
     Active Substance: LORAZEPAM
     Indication: DRUG DEPENDENCE
     Route: 065
  2. AZITHROMYCIN [Suspect]
     Active Substance: AZITHROMYCIN ANHYDROUS
     Indication: UPPER RESPIRATORY TRACT INFECTION
     Route: 048
  3. SUBOXONE [Interacting]
     Active Substance: BUPRENORPHINE HYDROCHLORIDE\NALOXONE HYDROCHLORIDE
     Indication: DRUG DETOXIFICATION
     Route: 065

REACTIONS (2)
  - Drug interaction [Unknown]
  - Respiratory failure [Recovering/Resolving]
